FAERS Safety Report 7371931-8 (Version None)
Quarter: 2011Q1

REPORT INFORMATION
  Report Type: 
  Country: None (occurrence: None)
  Receive Date: 20110314
  Receipt Date: 20110304
  Transmission Date: 20110831
  Serious: Yes (Hospitalization, Disabling)
  Sender: FDA-Public Use
  Company Number: 2009SP017417

PATIENT
  Age: 23 Year
  Sex: Female
  Weight: 63.5036 kg

DRUGS (2)
  1. IBUPROFEN (ADVIL) [Concomitant]
  2. NUVARING [Suspect]
     Indication: CONTRACEPTION
     Dosage: 1 DF, QM, VAG
     Route: 067
     Dates: start: 20060101, end: 20061016

REACTIONS (8)
  - DEEP VEIN THROMBOSIS [None]
  - GAIT DISTURBANCE [None]
  - PAIN [None]
  - PELVIC VENOUS THROMBOSIS [None]
  - PAPILLOMA [None]
  - PHOTOPSIA [None]
  - HEADACHE [None]
  - ANAEMIA [None]
